FAERS Safety Report 6223572-3 (Version None)
Quarter: 2009Q2

REPORT INFORMATION
  Report Type: 
  Country: None (occurrence: None)
  Receive Date: 20090610
  Receipt Date: 20090601
  Transmission Date: 20091009
  Serious: Yes (Hospitalization, Other)
  Sender: FDA-Public Use
  Company Number: ADE2009-0650

PATIENT
  Age: 13 Year
  Sex: Female

DRUGS (3)
  1. LISINOPRIL [Suspect]
  2. NICORANDIL [Suspect]
  3. METOCLOPRAMIDE [Suspect]

REACTIONS (9)
  - BACK PAIN [None]
  - DYSPNOEA [None]
  - HYPOPERFUSION [None]
  - HYPOTENSION [None]
  - HYPOXIA [None]
  - MULTIPLE DRUG OVERDOSE INTENTIONAL [None]
  - MYOCARDIAL ISCHAEMIA [None]
  - NO THERAPEUTIC RESPONSE [None]
  - TACHYCARDIA [None]
